FAERS Safety Report 26098690 (Version 1)
Quarter: 2025Q4

REPORT INFORMATION
  Report Type: Spontaneous
  Country: CN (occurrence: CN)
  Receive Date: 20251127
  Receipt Date: 20251127
  Transmission Date: 20260118
  Serious: Yes (Hospitalization, Other)
  Sender: ABBVIE
  Company Number: CN-LUNDBECK-DKLU4021956

PATIENT
  Age: 15 Year
  Sex: Female
  Weight: 40 kg

DRUGS (2)
  1. ESCITALOPRAM OXALATE [Suspect]
     Active Substance: ESCITALOPRAM OXALATE
     Indication: Completed suicide
     Dosage: INTENTIONAL OVERDOSE: 10 DOSAGE FORMS ONCE
     Route: 048
  2. SULPIRIDE [Suspect]
     Active Substance: SULPIRIDE
     Indication: Completed suicide
     Route: 048

REACTIONS (3)
  - Intentional overdose [Recovering/Resolving]
  - Product administered to patient of inappropriate age [Unknown]
  - Drug level increased [Recovering/Resolving]
